FAERS Safety Report 18224062 (Version 3)
Quarter: 2020Q4

REPORT INFORMATION
  Report Type: Spontaneous
  Country: IT (occurrence: IT)
  Receive Date: 20200902
  Receipt Date: 20201208
  Transmission Date: 20210113
  Serious: Yes (Other)
  Sender: FDA-Public Use
  Company Number: IT-B.I. PHARMACEUTICALS,INC./RIDGEFIELD-2020-BI-043897

PATIENT
  Age: 51 Year
  Sex: Male

DRUGS (2)
  1. GILOTRIF [Suspect]
     Active Substance: AFATINIB
     Indication: LUNG ADENOCARCINOMA STAGE IV
     Dates: start: 20171220, end: 20180523
  2. GILOTRIF [Suspect]
     Active Substance: AFATINIB
     Route: 065
     Dates: start: 20180606, end: 20180718

REACTIONS (5)
  - Encephalopathy [Unknown]
  - Nasal dryness [Recovered/Resolved]
  - Lymphopenia [Recovered/Resolved]
  - Malignant neoplasm progression [Unknown]
  - Rash pustular [Recovered/Resolved]

NARRATIVE: CASE EVENT DATE: 20180103
